FAERS Safety Report 16053331 (Version 5)
Quarter: 2019Q2

REPORT INFORMATION
  Report Type: Spontaneous
  Country: PL (occurrence: PL)
  Receive Date: 20190308
  Receipt Date: 20190629
  Transmission Date: 20190711
  Serious: Yes (Other)
  Sender: FDA-Public Use
  Company Number: PHHY2019PL050121

PATIENT

DRUGS (7)
  1. CLOBETASOL [Suspect]
     Active Substance: CLOBETASOL
     Indication: SKIN LESION
     Dosage: 1 DF, QD (1/DAY)
     Route: 061
  2. PREDNISONE. [Suspect]
     Active Substance: PREDNISONE
     Indication: SKIN LESION
     Dosage: 20 MG, QD
     Route: 048
  3. AMOXICILLIN TRIHYDRATE +POTASSIUM CLAVULANATE [Suspect]
     Active Substance: AMOXICILLIN\CLAVULANATE POTASSIUM
     Indication: TONSILLAR INFLAMMATION
  4. AMOXICILLIN TRIHYDRATE +POTASSIUM CLAVULANATE [Suspect]
     Active Substance: AMOXICILLIN\CLAVULANATE POTASSIUM
     Indication: SKIN LESION
     Dosage: 1 G, BID
     Route: 048
     Dates: start: 20160626, end: 20160724
  5. PREDNISONE. [Suspect]
     Active Substance: PREDNISONE
     Dosage: 20 MG DAILY
     Route: 048
  6. RUPATADINE [Suspect]
     Active Substance: RUPATADINE
     Indication: SKIN LESION
     Dosage: 2 DF, QD (2UG/L)
     Route: 065
  7. RUPATADINE [Suspect]
     Active Substance: RUPATADINE
     Dosage: 1 DF DAILY
     Route: 065

REACTIONS (8)
  - Papule [Recovered/Resolved]
  - Therapeutic product effect incomplete [Unknown]
  - Tonsillar hypertrophy [Recovered/Resolved]
  - Skin haemorrhage [Recovered/Resolved]
  - Skin disorder [Recovered/Resolved]
  - Pyrexia [Recovered/Resolved]
  - Skin lesion [Recovered/Resolved]
  - Condition aggravated [Recovered/Resolved]
